FAERS Safety Report 10529034 (Version 2)
Quarter: 2014Q4

REPORT INFORMATION
  Report Type: Spontaneous
  Country: US (occurrence: US)
  Receive Date: 20141020
  Receipt Date: 20141126
  Transmission Date: 20150528
  Serious: No
  Sender: FDA-Public Use
  Company Number: US-PFIZER INC-2014284696

PATIENT
  Age: 65 Year
  Sex: Female
  Weight: 62 kg

DRUGS (3)
  1. CELEBREX [Suspect]
     Active Substance: CELECOXIB
     Indication: MUSCULOSKELETAL PAIN
     Dosage: 200 MG, 1X/DAY
     Dates: start: 20141013
  2. SKELAXIN [Concomitant]
     Active Substance: METAXALONE
     Dosage: 800 MG, AS NEEDED
     Dates: start: 20141013
  3. CELEBREX [Suspect]
     Active Substance: CELECOXIB
     Indication: PERIARTHRITIS

REACTIONS (1)
  - Gingival bleeding [Recovered/Resolved]

NARRATIVE: CASE EVENT DATE: 20141014
